FAERS Safety Report 5761099-3 (Version None)
Quarter: 2008Q2

REPORT INFORMATION
  Report Type: 
  Country: None (occurrence: None)
  Receive Date: 20080606
  Receipt Date: 20080527
  Transmission Date: 20081010
  Serious: Yes (Other)
  Sender: FDA-Public Use
  Company Number: CH-ABBOTT-08P-151-0453354-00

PATIENT
  Age: 29 Year
  Sex: Male

DRUGS (1)
  1. DEPAKENE [Suspect]
     Indication: EPILEPSY CONGENITAL
     Route: 048
     Dates: start: 19980101

REACTIONS (2)
  - LUMBAR VERTEBRAL FRACTURE [None]
  - OSTEOPENIA [None]
